FAERS Safety Report 4458195-X (Version None)
Quarter: 2004Q3

REPORT INFORMATION
  Report Type: 
  Country: None (occurrence: None)
  Receive Date: 20040922
  Receipt Date: 20040908
  Transmission Date: 20050211
  Serious: Yes (Other)
  Sender: FDA-Public Use
  Company Number: 2004232602EC

PATIENT
  Age: 46 Year
  Sex: Female

DRUGS (6)
  1. BEXTRA [Suspect]
     Indication: PHARYNGOTONSILLITIS
     Dosage: 40 MG, QD, IV
     Route: 042
  2. VALDECOXIB [Suspect]
     Indication: PHARYNGOTONSILLITIS
     Dosage: 1 DF, QD
  3. REDOXON [Concomitant]
  4. NORVASC [Concomitant]
  5. CIPROFLOXACIN [Concomitant]
  6. DIOVAN [Concomitant]

REACTIONS (2)
  - FATIGUE [None]
  - NEPHROPATHY TOXIC [None]
